FAERS Safety Report 9923530 (Version 2)
Quarter: 2014Q1

REPORT INFORMATION
  Report Type: Spontaneous
  Country: US (occurrence: US)
  Receive Date: 20140225
  Receipt Date: 20140225
  Transmission Date: 20141002
  Serious: No
  Sender: FDA-Public Use
  Company Number: US-AMGEN-USASP2013081308

PATIENT
  Age: 64 Year
  Sex: Female
  Weight: 85.71 kg

DRUGS (1)
  1. ENBREL [Suspect]
     Indication: RHEUMATOID ARTHRITIS
     Dosage: 50 MG, QWK
     Route: 058
     Dates: start: 20130917

REACTIONS (6)
  - Gingival injury [Recovered/Resolved]
  - Pain in extremity [Unknown]
  - Localised infection [Recovered/Resolved]
  - Tooth infection [Unknown]
  - Injection site bruising [Unknown]
  - Injection site haemorrhage [Unknown]
